FAERS Safety Report 5009085-5 (Version None)
Quarter: 2006Q2

REPORT INFORMATION
  Report Type: 
  Country: None (occurrence: None)
  Receive Date: 20060523
  Receipt Date: 20060516
  Transmission Date: 20061013
  Serious: Yes (Hospitalization)
  Sender: FDA-Public Use
  Company Number: US-ABBOTT-06P-163-0333490-00

PATIENT
  Sex: Female
  Weight: 61.29 kg

DRUGS (2)
  1. OMNICEF [Suspect]
     Indication: SKIN ULCER
     Route: 048
     Dates: start: 20060101, end: 20060101
  2. MEFLOQUINE [Concomitant]
     Indication: MALARIA PROPHYLAXIS
     Route: 048
     Dates: start: 20051201

REACTIONS (1)
  - GRAND MAL CONVULSION [None]
